FAERS Safety Report 8364525-9 (Version None)
Quarter: 2012Q2

REPORT INFORMATION
  Report Type: 
  Country: None (occurrence: None)
  Receive Date: 20120516
  Receipt Date: 20120509
  Transmission Date: 20120825
  Serious: Yes (Hospitalization, Disabling, Other)
  Sender: FDA-Public Use
  Company Number: US-MERCK-1201USA02542

PATIENT
  Age: 54 Year
  Sex: Female
  Weight: 75 kg

DRUGS (4)
  1. ACTONEL [Suspect]
     Indication: OSTEOPENIA
     Route: 048
     Dates: start: 20090122, end: 20100120
  2. FOSAMAX [Suspect]
     Indication: OSTEOPENIA
     Route: 048
     Dates: start: 20040101, end: 20090122
  3. FOSAMAX [Suspect]
     Route: 048
     Dates: start: 20031101
  4. FOSAMAX [Suspect]
     Route: 048
     Dates: start: 20011001

REACTIONS (20)
  - FEMUR FRACTURE [None]
  - BRONCHITIS [None]
  - IMPAIRED HEALING [None]
  - INTERVERTEBRAL DISC PROTRUSION [None]
  - MUSCLE SPASMS [None]
  - WEIGHT INCREASED [None]
  - TOOTH IMPACTED [None]
  - SCOLIOSIS [None]
  - HYPERTENSION [None]
  - HYSTERECTOMY [None]
  - LIP DISORDER [None]
  - LOSS OF CONSCIOUSNESS [None]
  - OSTEOARTHRITIS [None]
  - TREATMENT FAILURE [None]
  - LUMBAR RADICULOPATHY [None]
  - INTERVERTEBRAL DISC DEGENERATION [None]
  - PATELLOFEMORAL PAIN SYNDROME [None]
  - HYPERCHOLESTEROLAEMIA [None]
  - ARTHROPATHY [None]
  - OSTEOPOROSIS [None]
